FAERS Safety Report 8296673-6 (Version None)
Quarter: 2012Q2

REPORT INFORMATION
  Report Type: 
  Country: None (occurrence: None)
  Receive Date: 20120418
  Receipt Date: 20120418
  Transmission Date: 20120825
  Serious: No
  Sender: FDA-Public Use
  Company Number: None

PATIENT
  Age: 51 Year
  Sex: Female
  Weight: 89.357 kg

DRUGS (1)
  1. CYMBALTA [Suspect]
     Indication: DEPRESSION
     Dates: start: 20080608, end: 20120217

REACTIONS (11)
  - INSOMNIA [None]
  - HYPERHIDROSIS [None]
  - DEPRESSION [None]
  - CONDITION AGGRAVATED [None]
  - IMPAIRED DRIVING ABILITY [None]
  - DIZZINESS [None]
  - PARAESTHESIA [None]
  - CONFUSIONAL STATE [None]
  - COMPULSIONS [None]
  - WITHDRAWAL SYNDROME [None]
  - MYALGIA [None]
